FAERS Safety Report 9162170 (Version 2)
Quarter: 2013Q1

REPORT INFORMATION
  Report Type: Spontaneous
  Country: GB (occurrence: GB)
  Receive Date: 20130314
  Receipt Date: 20130328
  Transmission Date: 20140127
  Serious: Yes (Other)
  Sender: FDA-Public Use
  Company Number: PHFR2013GB000848

PATIENT
  Age: 65 Year
  Sex: Female

DRUGS (5)
  1. CLOZARIL [Suspect]
     Indication: SCHIZOPHRENIA
     Dosage: 6.25 MG, BID
     Route: 048
     Dates: start: 20130111, end: 20130226
  2. CLOZARIL [Suspect]
     Dosage: 225 MG, (100 MG AT AM AND 125 MG AT PM)
  3. ASPIRIN [Concomitant]
     Indication: PROPHYLAXIS
     Dosage: 125 MG, QD
     Route: 048
  4. LORAZEPAM [Concomitant]
     Indication: AGITATION
     Dosage: 2 MG, BID
     Route: 048
  5. LEVOTHYROXINE [Concomitant]
     Indication: HYPOTHYROIDISM
     Dosage: 125 UG, QD
     Route: 048

REACTIONS (6)
  - C-reactive protein increased [Recovered/Resolved]
  - Heart rate increased [Recovered/Resolved]
  - Pyrexia [Recovered/Resolved]
  - White blood cell count decreased [Recovered/Resolved]
  - Diarrhoea [Recovered/Resolved]
  - Constipation [Recovered/Resolved]
